FAERS Safety Report 8074941-0 (Version None)
Quarter: 2012Q1

REPORT INFORMATION
  Report Type: 
  Country: None (occurrence: None)
  Receive Date: 20120127
  Receipt Date: 20120112
  Transmission Date: 20120608
  Serious: Yes (Other)
  Sender: FDA-Public Use
  Company Number: ES-RANBAXY-2012R3-52005

PATIENT

DRUGS (2)
  1. IBUPROFEN [Suspect]
     Indication: PAIN
     Dosage: 600 MG, 1 IN 1 D
     Route: 048
     Dates: start: 20111115, end: 20111118
  2. EBASTINE [Suspect]
     Indication: CONJUNCTIVITIS
     Dosage: UNK
     Route: 048
     Dates: start: 20111111, end: 20111115

REACTIONS (1)
  - THROMBOCYTOPENIA [None]
